FAERS Safety Report 4739855-X (Version None)
Quarter: 2005Q3

REPORT INFORMATION
  Report Type: 
  Country: None (occurrence: None)
  Receive Date: 20050810
  Receipt Date: 20050520
  Transmission Date: 20060218
  Serious: No
  Sender: FDA-Public Use
  Company Number: US-GLAXOSMITHKLINE-A0559576A

PATIENT
  Age: 85 Year
  Sex: Female

DRUGS (4)
  1. PAROXETINE HCL [Suspect]
     Dosage: 10MG PER DAY
     Route: 048
     Dates: start: 20050513
  2. FOSAMAX [Concomitant]
  3. ROCALTROL [Concomitant]
  4. ZYRTEC [Concomitant]

REACTIONS (2)
  - EYE PAIN [None]
  - NERVOUSNESS [None]
